FAERS Safety Report 8024352-9 (Version None)
Quarter: 2012Q1

REPORT INFORMATION
  Report Type: 
  Country: None (occurrence: None)
  Receive Date: 20120105
  Receipt Date: 20120103
  Transmission Date: 20120608
  Serious: Yes (Other)
  Sender: FDA-Public Use
  Company Number: PHEH2009US11070

PATIENT
  Sex: Male

DRUGS (19)
  1. ZOMETA [Suspect]
     Indication: MULTIPLE MYELOMA
     Dates: start: 20080301
  2. CYTOXAN [Concomitant]
     Route: 042
  3. MELPHALAN HYDROCHLORIDE [Concomitant]
  4. DECADRON [Concomitant]
     Route: 048
  5. METHOTREXATE [Concomitant]
     Dosage: 15 MG, QW
  6. ACYCLOVIR [Concomitant]
     Dosage: 800 MG, BID
     Route: 048
  7. LEVAQUIN [Concomitant]
     Dosage: 750 MG, QD
     Route: 048
  8. REVLIMID [Concomitant]
     Route: 048
  9. COLCHICINE [Concomitant]
     Dosage: 0.6 MG, BID
  10. PROZAC [Concomitant]
     Dosage: 10 MG, QD
  11. ATIVAN [Concomitant]
     Dosage: 1 MG, QHS
     Route: 048
  12. KEFLEX [Concomitant]
     Dosage: 1 DF, Q6H
     Route: 048
  13. ALLOPURINOL [Concomitant]
  14. VOLTAREN [Concomitant]
     Route: 048
  15. PREDNISONE TAB [Concomitant]
     Dosage: 40 MG, QD
  16. ZOMETA [Suspect]
     Dosage: 4 MG, QMO
     Route: 042
  17. COUMADIN [Concomitant]
  18. PRILOSEC [Concomitant]
  19. CELEBREX [Concomitant]
     Dosage: 200 MG, QD
     Route: 048

REACTIONS (50)
  - SPINAL COMPRESSION FRACTURE [None]
  - DISABILITY [None]
  - RENAL FAILURE [None]
  - ARTHRITIS [None]
  - MUSCLE STRAIN [None]
  - HYPOAESTHESIA [None]
  - INJURY [None]
  - ANHEDONIA [None]
  - BACK PAIN [None]
  - EXPOSED BONE IN JAW [None]
  - FINGER DEFORMITY [None]
  - PARAESTHESIA [None]
  - RASH [None]
  - ANXIETY [None]
  - LOBAR PNEUMONIA [None]
  - OSTEOPENIA [None]
  - LUNG DISORDER [None]
  - PYREXIA [None]
  - ANAEMIA [None]
  - GOUT [None]
  - INFLUENZA [None]
  - JOINT STIFFNESS [None]
  - CHRONIC OBSTRUCTIVE PULMONARY DISEASE [None]
  - CHEST PAIN [None]
  - PARAPROTEINAEMIA [None]
  - TOOTH DEPOSIT [None]
  - UPPER RESPIRATORY TRACT INFECTION [None]
  - FAECES DISCOLOURED [None]
  - EAR DISCOMFORT [None]
  - ATELECTASIS [None]
  - PAIN [None]
  - CRYOGLOBULINAEMIA [None]
  - GINGIVAL BLEEDING [None]
  - ARTHRALGIA [None]
  - PAIN IN EXTREMITY [None]
  - OSTEONECROSIS OF JAW [None]
  - DIARRHOEA [None]
  - HYPERLIPIDAEMIA [None]
  - MELAENA [None]
  - VITAMIN D DEFICIENCY [None]
  - MALAISE [None]
  - DYSPNOEA [None]
  - INTERVERTEBRAL DISC DEGENERATION [None]
  - EAR INFECTION [None]
  - SPINAL OSTEOARTHRITIS [None]
  - SINUSITIS [None]
  - ABDOMINAL PAIN [None]
  - COUGH [None]
  - CHILLS [None]
  - LUNG NEOPLASM [None]
